FAERS Safety Report 24564833 (Version 2)
Quarter: 2025Q1

REPORT INFORMATION
  Report Type: Spontaneous
  Country: DE (occurrence: DE)
  Receive Date: 20241030
  Receipt Date: 20250313
  Transmission Date: 20250408
  Serious: Yes (Hospitalization, Other)
  Sender: TEVA
  Company Number: None

PATIENT
  Age: 47 Year
  Sex: Female
  Weight: 117 kg

DRUGS (2)
  1. TAMOXIFEN [Suspect]
     Active Substance: TAMOXIFEN
     Indication: Breast cancer female
     Route: 048
     Dates: start: 20190817
  2. LEVOTHYROXINE SODIUM [Concomitant]
     Active Substance: LEVOTHYROXINE SODIUM
     Indication: Hypothyroidism
     Route: 065
     Dates: start: 2017

REACTIONS (3)
  - Atrial fibrillation [Not Recovered/Not Resolved]
  - Atrial flutter [Not Recovered/Not Resolved]
  - Heart rate increased [Not Recovered/Not Resolved]

NARRATIVE: CASE EVENT DATE: 20210913
